FAERS Safety Report 21735092 (Version 1)
Quarter: 2022Q4

REPORT INFORMATION
  Report Type: Report from Study
  Country: EG (occurrence: EG)
  Receive Date: 20221215
  Receipt Date: 20221215
  Transmission Date: 20230112
  Serious: Yes (Life-Threatening, Other)
  Sender: FDA-Public Use
  Company Number: EG-002147023-NVSC2022EG287746

PATIENT
  Age: 46 Year
  Sex: Male

DRUGS (8)
  1. ENTRESTO [Suspect]
     Active Substance: SACUBITRIL\VALSARTAN
     Indication: Cardiac failure
     Dosage: 1 DOSAGE FORM, BID, 50
     Route: 048
     Dates: start: 202208, end: 202211
  2. ENTRESTO [Suspect]
     Active Substance: SACUBITRIL\VALSARTAN
     Dosage: 0.5 DOSAGE FORM, BID, 50
     Route: 048
     Dates: start: 202211, end: 20221206
  3. ENTRESTO [Suspect]
     Active Substance: SACUBITRIL\VALSARTAN
     Dosage: 1 DOSAGE FORM, BID
     Route: 048
     Dates: start: 20221206
  4. RIVAROSPIRE [Concomitant]
     Indication: Thrombosis
     Dosage: 1 DOSAGE FORM, QD, 20
     Route: 048
     Dates: start: 20220301
  5. CLOPEX [Concomitant]
     Indication: Thrombosis
     Dosage: 1 DOSAGE FORM, QD. 75
     Route: 048
  6. PANADOL [Concomitant]
     Active Substance: ACETAMINOPHEN
     Indication: Analgesic therapy
     Dosage: 1 DOSAGE FORM
     Route: 048
  7. NICOTINE [Concomitant]
     Active Substance: NICOTINE
     Indication: Tobacco user
     Dosage: UNK, QD, ONE PATCH FOR 12 HOURS, 20 DAYS
     Route: 065
  8. SPECTONE [Concomitant]
     Indication: Product used for unknown indication
     Dosage: 1 DOSAGE FORM, QD, 25 (STARTED FROM MAR)
     Route: 065

REACTIONS (10)
  - Hypertension [Recovered/Resolved]
  - Hypotension [Recovered/Resolved]
  - Hypertension [Recovered/Resolved]
  - Headache [Recovered/Resolved]
  - Vomiting [Recovered/Resolved]
  - Neck pain [Recovered/Resolved]
  - Tachycardia [Recovering/Resolving]
  - Dyspnoea [Recovered/Resolved]
  - Wrong technique in product usage process [Unknown]
  - Prescribed underdose [Unknown]

NARRATIVE: CASE EVENT DATE: 20221001
